FAERS Safety Report 4563228-6 (Version None)
Quarter: 2005Q1

REPORT INFORMATION
  Report Type: 
  Country: None (occurrence: None)
  Receive Date: 20050128
  Receipt Date: 20050119
  Transmission Date: 20050727
  Serious: Yes (Death, Life-Threatening, Other)
  Sender: FDA-Public Use
  Company Number: GB-JNJFOC-20041103636

PATIENT
  Sex: Male

DRUGS (11)
  1. REMICADE [Suspect]
     Indication: RHEUMATOID ARTHRITIS
     Route: 042
  2. METHOTREXATE [Concomitant]
  3. PREDNISOLONE [Concomitant]
  4. FRUSEMIDE [Concomitant]
  5. ASPIRIN [Concomitant]
  6. RAMIPRIL [Concomitant]
  7. LANSOPRAZOLE [Concomitant]
  8. NABUMETONE [Concomitant]
  9. DIDRONEL [Concomitant]
  10. INDORAMIN [Concomitant]
  11. IMDUR [Concomitant]

REACTIONS (18)
  - ANAEMIA [None]
  - ASBESTOSIS [None]
  - BRONCHOPNEUMONIA [None]
  - CARDIAC FAILURE CONGESTIVE [None]
  - CHEST PAIN [None]
  - CHRONIC OBSTRUCTIVE PULMONARY DISEASE [None]
  - CIRCULATORY COLLAPSE [None]
  - DIZZINESS [None]
  - DYSPNOEA [None]
  - HEAD INJURY [None]
  - HYPOTENSION [None]
  - INFECTION [None]
  - LUNG ADENOCARCINOMA [None]
  - LUNG NEOPLASM MALIGNANT [None]
  - MYOCARDIAL ISCHAEMIA [None]
  - PALPITATIONS [None]
  - RESPIRATORY ARREST [None]
  - SYNCOPE VASOVAGAL [None]
